FAERS Safety Report 16664310 (Version 1)
Quarter: 2019Q3

REPORT INFORMATION
  Report Type: Spontaneous
  Country: US (occurrence: US)
  Receive Date: 20190802
  Receipt Date: 20190802
  Transmission Date: 20191004
  Serious: Yes (Other)
  Sender: FDA-Public Use
  Company Number: US-ELI_LILLY_AND_COMPANY-US201907015226

PATIENT
  Sex: Female

DRUGS (2)
  1. HUMALOG [Suspect]
     Active Substance: INSULIN LISPRO
     Dosage: 08 U, TID
     Route: 065
  2. HUMALOG [Suspect]
     Active Substance: INSULIN LISPRO
     Indication: PRODUCT USED FOR UNKNOWN INDICATION
     Dosage: 08 U, TID
     Route: 065

REACTIONS (7)
  - Blood glucose increased [Recovering/Resolving]
  - Diabetic blindness [Unknown]
  - Diabetic nephropathy [Unknown]
  - Diplopia [Not Recovered/Not Resolved]
  - Eye disorder [Unknown]
  - Vision blurred [Not Recovered/Not Resolved]
  - Product dose omission [Unknown]
